FAERS Safety Report 14006308 (Version 3)
Quarter: 2017Q4

REPORT INFORMATION
  Report Type: Report from Study
  Country: JP (occurrence: JP)
  Receive Date: 20170924
  Receipt Date: 20171221
  Transmission Date: 20180321
  Serious: Yes (Death, Life-Threatening)
  Sender: FDA-Public Use
  Company Number: JP-TAKEDA-2017TJP019865AA

PATIENT
  Age: 83 Year
  Sex: Male
  Weight: 46 kg

DRUGS (2)
  1. IXAZOMIB [Suspect]
     Active Substance: IXAZOMIB
     Indication: PLASMA CELL MYELOMA
     Dosage: 4 MG, 1/WEEK
     Route: 048
     Dates: start: 20170916, end: 20170916
  2. DEXAMETHASONE. [Suspect]
     Active Substance: DEXAMETHASONE
     Indication: PLASMA CELL MYELOMA
     Dosage: 8 MG, 1/WEEK
     Route: 048
     Dates: start: 20170916, end: 20170916

REACTIONS (3)
  - Pneumonia [Fatal]
  - Diarrhoea [Unknown]
  - White blood cell count decreased [Fatal]

NARRATIVE: CASE EVENT DATE: 20170916
